FAERS Safety Report 10084633 (Version 2)
Quarter: 2014Q2

REPORT INFORMATION
  Report Type: Report from Study
  Country: JP (occurrence: JP)
  Receive Date: 20140417
  Receipt Date: 20140512
  Transmission Date: 20141212
  Serious: Yes (Other)
  Sender: FDA-Public Use
  Company Number: JP-OTSUKA-JP-2014-13228

PATIENT
  Age: 87 Year
  Sex: Female
  Weight: 40.1 kg

DRUGS (9)
  1. SAMSCA [Suspect]
     Indication: OEDEMA DUE TO CARDIAC DISEASE
     Dosage: 7.5 MG MILLIGRAM(S), QAM
     Route: 048
     Dates: start: 20130725, end: 20130803
  2. MICARDIS [Suspect]
     Indication: PRODUCT USED FOR UNKNOWN INDICATION
     Dosage: 40 MG MILLIGRAM(S), DAILY DOSE
     Route: 048
     Dates: end: 20130725
  3. HANP [Suspect]
     Indication: CARDIAC FAILURE
     Dosage: 2 MG MILLIGRAM(S), DAILY DOSE
     Route: 041
     Dates: start: 20130722, end: 20130725
  4. LASIX [Concomitant]
     Indication: CARDIAC FAILURE
     Dosage: 20 MG MILLIGRAM(S), DAILY DOSE
     Route: 048
  5. ZYLORIC [Concomitant]
     Dosage: 100 MG MILLIGRAM(S), DAILY DOSE
     Route: 048
  6. WARFARIN K [Concomitant]
     Indication: CARDIAC FAILURE
     Dosage: 3.75 MG MILLIGRAM(S), DAILY DOSE
     Route: 048
  7. AMOBAN [Concomitant]
     Indication: PROPHYLAXIS
     Dosage: 7.5 MG MILLIGRAM(S), DAILY DOSE
     Route: 048
  8. TAKEPRON [Concomitant]
     Indication: PROPHYLAXIS
     Dosage: 30 MG MILLIGRAM(S), DAILY DOSE
     Route: 048
  9. ULCERLMIN [Concomitant]
     Indication: PROPHYLAXIS
     Dosage: 3 G GRAM(S), DAILY DOSE
     Route: 048

REACTIONS (1)
  - Blood pressure decreased [Recovering/Resolving]
